FAERS Safety Report 24105875 (Version 7)
Quarter: 2025Q1

REPORT INFORMATION
  Report Type: Spontaneous
  Country: IN (occurrence: IN)
  Receive Date: 20240717
  Receipt Date: 20250107
  Transmission Date: 20250409
  Serious: Yes (Other)
  Sender: PFIZER
  Company Number: IN-PFIZER INC-PV202400090807

PATIENT
  Age: 52 Year
  Sex: Male

DRUGS (9)
  1. LORLATINIB [Suspect]
     Active Substance: LORLATINIB
     Indication: Non-small cell lung cancer
     Dosage: 100 MG, 1X/DAY
     Route: 048
     Dates: start: 20240708
  2. LORLATINIB [Suspect]
     Active Substance: LORLATINIB
     Dosage: 75 MG (3 TABLETS OF 25 MG), 1X/DAY
     Route: 048
     Dates: start: 2024
  3. LORLATINIB [Suspect]
     Active Substance: LORLATINIB
     Dosage: 50 MG, 1X/DAY
     Route: 048
     Dates: start: 2024
  4. PAN [Concomitant]
  5. CETAPHIL [ALOE VERA;PANTHENOL] [Concomitant]
  6. LOMOTIL [Concomitant]
     Active Substance: ATROPINE SULFATE\DIPHENOXYLATE HYDROCHLORIDE
  7. CREMAFFIN [Concomitant]
  8. SUCRAFIL [Concomitant]
  9. MORPHINE [Concomitant]
     Active Substance: MORPHINE

REACTIONS (32)
  - Nephrolithiasis [Not Recovered/Not Resolved]
  - Disease recurrence [Not Recovered/Not Resolved]
  - Weight fluctuation [Unknown]
  - Asthenia [Not Recovered/Not Resolved]
  - Flatulence [Unknown]
  - Abdominal distension [Recovering/Resolving]
  - Hyperchlorhydria [Unknown]
  - Dyspepsia [Unknown]
  - Balance disorder [Unknown]
  - Coordination abnormal [Unknown]
  - Anxiety [Not Recovered/Not Resolved]
  - Nasopharyngitis [Recovering/Resolving]
  - Sleep disorder [Recovering/Resolving]
  - Tracheal compression [Recovering/Resolving]
  - Platelet count increased [Recovering/Resolving]
  - Full blood count decreased [Unknown]
  - Dizziness [Not Recovered/Not Resolved]
  - Constipation [Recovered/Resolved]
  - Chromaturia [Recovered/Resolved]
  - Blood potassium increased [Recovered/Resolved]
  - Gastrointestinal disorder [Recovering/Resolving]
  - Dysphonia [Recovering/Resolving]
  - Appetite disorder [Recovering/Resolving]
  - Platelet count decreased [Recovering/Resolving]
  - Diarrhoea [Recovered/Resolved]
  - Mood swings [Not Recovered/Not Resolved]
  - Anger [Not Recovered/Not Resolved]
  - Speech disorder [Not Recovered/Not Resolved]
  - Lipids increased [Unknown]
  - Muscle spasms [Not Recovered/Not Resolved]
  - Fatigue [Recovering/Resolving]
  - Cough [Recovering/Resolving]

NARRATIVE: CASE EVENT DATE: 20240101
